FAERS Safety Report 15705175 (Version 1)
Quarter: 2018Q4

REPORT INFORMATION
  Report Type: Spontaneous
  Country: US (occurrence: US)
  Receive Date: 20181210
  Receipt Date: 20181210
  Transmission Date: 20190205
  Serious: No
  Sender: FDA-Public Use
  Company Number: US-PFIZER INC-2018504770

PATIENT
  Age: 45 Year
  Sex: Female

DRUGS (1)
  1. GENOTROPIN MQ [Suspect]
     Active Substance: SOMATROPIN
     Dosage: 0.8 MG, DAILY
     Dates: start: 20161010

REACTIONS (12)
  - Insulin-like growth factor increased [Unknown]
  - Mean cell haemoglobin decreased [Unknown]
  - White blood cell count increased [Unknown]
  - Blood urea increased [Unknown]
  - Glomerular filtration rate decreased [Unknown]
  - Blood glucose increased [Unknown]
  - Blood creatinine increased [Unknown]
  - Blood potassium decreased [Unknown]
  - Bone density increased [Unknown]
  - Blood bilirubin decreased [Unknown]
  - Blood thyroid stimulating hormone decreased [Unknown]
  - Promyelocyte count increased [Unknown]

NARRATIVE: CASE EVENT DATE: 20180420
